FAERS Safety Report 11073094 (Version 2)
Quarter: 2015Q2

REPORT INFORMATION
  Report Type: Report from Study
  Country: US (occurrence: US)
  Receive Date: 20150428
  Receipt Date: 20150429
  Transmission Date: 20150821
  Serious: Yes (Hospitalization)
  Sender: FDA-Public Use
  Company Number: US-MERCK-1504USA021488

PATIENT
  Age: 43 Year
  Sex: Female
  Weight: 82.7 kg

DRUGS (6)
  1. IDARUBICIN HYDROCHLORIDE. [Suspect]
     Active Substance: IDARUBICIN HYDROCHLORIDE
     Dosage: 8 MG/M2, QD, IV OVER 15MINS ON DAYS 4-5, CYCLE 2
     Route: 042
     Dates: start: 20150331, end: 20150401
  2. VORINOSTAT [Suspect]
     Active Substance: VORINOSTAT
     Dosage: 500 MG, TID, ON DAYS 1-3, CYCLE 2
     Route: 048
     Dates: start: 20150328, end: 20150331
  3. IDARUBICIN HYDROCHLORIDE. [Suspect]
     Active Substance: IDARUBICIN HYDROCHLORIDE
     Indication: ACUTE MYELOID LEUKAEMIA
     Dosage: 12 MG/M2, QD, IV OVER 15MINS ON DAYS 4-6, CYCLE 1
     Route: 042
     Dates: start: 20150223, end: 20150226
  4. VORINOSTAT [Suspect]
     Active Substance: VORINOSTAT
     Indication: ACUTE MYELOID LEUKAEMIA
     Dosage: 500 MG, TID ON DAYS 1-3, CYCLE 1
     Route: 048
     Dates: start: 20150220, end: 20150222
  5. CYTARABINE. [Suspect]
     Active Substance: CYTARABINE
     Dosage: 750 MG/M2, QD CONTINOUS INFUSION ON DAYS 4-6, CYCLE 2
     Route: 042
     Dates: start: 20150331, end: 20150402
  6. CYTARABINE. [Suspect]
     Active Substance: CYTARABINE
     Indication: ACUTE MYELOID LEUKAEMIA
     Dosage: 1500MG/M2/DAY CONTINUOUS INFUSION ON DAYS 4-7, CYCLE 1
     Route: 042
     Dates: start: 20150223, end: 20150226

REACTIONS (1)
  - Febrile neutropenia [Recovered/Resolved]

NARRATIVE: CASE EVENT DATE: 20150408
